FAERS Safety Report 11907720 (Version 1)
Quarter: 2016Q1

REPORT INFORMATION
  Report Type: Report from Study
  Country: US (occurrence: US)
  Receive Date: 20160111
  Receipt Date: 20160111
  Transmission Date: 20160526
  Serious: No
  Sender: FDA-Public Use
  Company Number: US-ABBVIE-15P-163-1497545-00

PATIENT
  Age: 51 Year
  Sex: Male
  Weight: 69.46 kg

DRUGS (3)
  1. FLUOXETINE [Concomitant]
     Active Substance: FLUOXETINE HYDROCHLORIDE
     Indication: ANXIETY
  2. DUOPA [Suspect]
     Active Substance: CARBIDOPA\LEVODOPA
     Indication: PRODUCT USED FOR UNKNOWN INDICATION
     Route: 050
     Dates: start: 201508
  3. GALANTAMINE. [Concomitant]
     Active Substance: GALANTAMINE
     Indication: AMNESIA

REACTIONS (8)
  - Abdominal pain [Recovering/Resolving]
  - Stoma site erythema [Recovering/Resolving]
  - Stoma site haemorrhage [Recovering/Resolving]
  - Stoma site discharge [Recovering/Resolving]
  - Device dislocation [Recovered/Resolved]
  - Staphylococcal infection [Unknown]
  - Stoma site infection [Recovering/Resolving]
  - Stoma site odour [Recovered/Resolved]

NARRATIVE: CASE EVENT DATE: 20151103
